FAERS Safety Report 25105484 (Version 2)
Quarter: 2025Q2

REPORT INFORMATION
  Report Type: Spontaneous
  Country: US (occurrence: US)
  Receive Date: 20250321
  Receipt Date: 20250402
  Transmission Date: 20250717
  Serious: No
  Sender: PFIZER
  Company Number: US-PFIZER INC-202500060407

PATIENT
  Age: 91 Year
  Sex: Female

DRUGS (1)
  1. XELJANZ [Suspect]
     Active Substance: TOFACITINIB CITRATE
     Indication: Rheumatoid arthritis
     Dosage: 5 MG, 2X/DAY (ONE TABLET (5 MG TOTAL) BY MOUTH 2 (TWO) TIMES DAILY)
     Route: 048

REACTIONS (3)
  - Musculoskeletal stiffness [Unknown]
  - Muscular weakness [Unknown]
  - Skin lesion [Unknown]
